FAERS Safety Report 24584151 (Version 1)
Quarter: 2024Q4

REPORT INFORMATION
  Report Type: Report from Study
  Country: CA (occurrence: CA)
  Receive Date: 20241106
  Receipt Date: 20241106
  Transmission Date: 20250115
  Serious: Yes (Hospitalization)
  Sender: JOHNSON AND JOHNSON
  Company Number: CA-JNJFOC-20240721366

PATIENT
  Age: 23 Year
  Sex: Female

DRUGS (2)
  1. REMICADE [Suspect]
     Active Substance: INFLIXIMAB
     Indication: Crohn^s disease
     Dosage: THERAPY START DATE-28-MAR-2024?EXPIRATION DATE : -SEP-2025
     Route: 041
     Dates: start: 20160219, end: 20241031
  2. SKYRIZI [Concomitant]
     Active Substance: RISANKIZUMAB-RZAA
     Indication: Product used for unknown indication

REACTIONS (6)
  - Pyloric stenosis [Not Recovered/Not Resolved]
  - Crohn^s disease [Not Recovered/Not Resolved]
  - Cholecystectomy [Unknown]
  - Intestinal resection [Unknown]
  - Surgery [Unknown]
  - Speech disorder [Unknown]

NARRATIVE: CASE EVENT DATE: 20240703
